FAERS Safety Report 6657510-6 (Version None)
Quarter: 2010Q1

REPORT INFORMATION
  Report Type: 
  Country: None (occurrence: None)
  Receive Date: 20100330
  Receipt Date: 20100330
  Transmission Date: 20100710
  Serious: Yes (Hospitalization)
  Sender: FDA-Public Use
  Company Number: PHHO2007DE05390

PATIENT
  Sex: Female
  Weight: 72 kg

DRUGS (3)
  1. ZOLEDRONIC ACID [Suspect]
     Indication: OSTEOPOROSIS POSTMENOPAUSAL
     Dosage: UNK
     Route: 042
     Dates: start: 20051215
  2. CALCIUM [Concomitant]
     Indication: OSTEOPOROSIS POSTMENOPAUSAL
  3. VITAMIN D [Concomitant]
     Indication: OSTEOPOROSIS POSTMENOPAUSAL

REACTIONS (9)
  - ABDOMINAL PAIN UPPER [None]
  - BILE DUCT STONE [None]
  - BILIARY COLIC [None]
  - CHOLANGITIS [None]
  - CHOLECYSTECTOMY [None]
  - CHOLELITHIASIS [None]
  - CHOLELITHOTOMY [None]
  - CHOLESTASIS [None]
  - HEPATIC ENZYME INCREASED [None]
